FAERS Safety Report 7967476-4 (Version None)
Quarter: 2011Q4

REPORT INFORMATION
  Report Type: 
  Country: None (occurrence: None)
  Receive Date: 20111209
  Receipt Date: 20101028
  Transmission Date: 20120403
  Serious: No
  Sender: FDA-Public Use
  Company Number: US-GLAXOSMITHKLINE-A0889399A

PATIENT
  Age: 79 Year
  Sex: Male

DRUGS (5)
  1. GABAPENTIN [Concomitant]
  2. LOVAZA [Concomitant]
  3. UROXATRAL [Concomitant]
  4. LISINOPRIL [Concomitant]
  5. AVANDAMET [Suspect]
     Indication: TYPE 2 DIABETES MELLITUS
     Route: 048
     Dates: start: 20100801

REACTIONS (1)
  - CHEST DISCOMFORT [None]
